FAERS Safety Report 21605533 (Version 1)
Quarter: 2022Q4

REPORT INFORMATION
  Report Type: Spontaneous
  Country: NL (occurrence: NL)
  Receive Date: 20221116
  Receipt Date: 20221116
  Transmission Date: 20230113
  Serious: Yes (Other)
  Sender: FDA-Public Use
  Company Number: None

PATIENT
  Sex: Female
  Weight: 65 kg

DRUGS (2)
  1. DOXYCYCLINE [Suspect]
     Active Substance: DOXYCYCLINE
     Indication: Sinusitis
     Dosage: 1 X 2 AND 5 X 1 DAY,  STRENGTH : 100MG / BRAND NAME NOT SPECIFIED, UNIT DOSE : 200MG, THERAPY END DA
     Dates: start: 20201010
  2. DOXYCYCLINE [Suspect]
     Active Substance: DOXYCYCLINE
     Dosage: 5 X 1, THERAPY START DATE : ASKU , THERAPY END DATE : ASKU, UNIT DOSE :100MG  , FREQUENCY TIME : 1 D

REACTIONS (3)
  - Arrhythmia [Recovering/Resolving]
  - Tremor [Recovering/Resolving]
  - Headache [Recovering/Resolving]
